FAERS Safety Report 10678364 (Version 1)
Quarter: 2014Q4

REPORT INFORMATION
  Report Type: Spontaneous
  Country: US (occurrence: None)
  Receive Date: 20141224
  Receipt Date: 20141224
  Transmission Date: 20150529
  Serious: Yes (Hospitalization)
  Sender: FDA-Public Use
  Company Number: None

PATIENT
  Age: 23 Year
  Sex: Female
  Weight: 62.14 kg

DRUGS (1)
  1. CIPROFLOXACIN HYDROCHLORIDE. [Suspect]
     Active Substance: CIPROFLOXACIN HYDROCHLORIDE
     Indication: URINARY TRACT INFECTION
     Dosage: 1 PILL
     Route: 048

REACTIONS (7)
  - Immobile [None]
  - Blood potassium decreased [None]
  - Nausea [None]
  - Loss of consciousness [None]
  - Diarrhoea [None]
  - Abdominal pain upper [None]
  - Asthenia [None]

NARRATIVE: CASE EVENT DATE: 20141207
